FAERS Safety Report 14962151 (Version 1)
Quarter: 2018Q2

REPORT INFORMATION
  Report Type: Other
  Country: MY (occurrence: MY)
  Receive Date: 20180601
  Receipt Date: 20180601
  Transmission Date: 20180711
  Serious: Yes (Other)
  Sender: FDA-Public Use
  Company Number: MY-AJANTA PHARMA USA INC.-2048845

PATIENT
  Age: 61 Year
  Sex: Female

DRUGS (2)
  1. RISPERIDONE. [Suspect]
     Active Substance: RISPERIDONE
     Indication: SCHIZOPHRENIA
     Route: 048
  2. OLANZAPINE. [Suspect]
     Active Substance: OLANZAPINE
     Route: 048

REACTIONS (2)
  - Leukopenia [Recovered/Resolved]
  - Drug interaction [Recovered/Resolved]
